FAERS Safety Report 5787166-6 (Version None)
Quarter: 2008Q2

REPORT INFORMATION
  Report Type: 
  Country: None (occurrence: None)
  Receive Date: 20080625
  Receipt Date: 20080416
  Transmission Date: 20081010
  Serious: No
  Sender: FDA-Public Use
  Company Number: US-BAUSCH-2008BL001703

PATIENT
  Age: 58 Year
  Sex: Female
  Weight: 72 kg

DRUGS (2)
  1. ALAWAY [Suspect]
     Indication: EYE ALLERGY
     Route: 047
     Dates: start: 20071201, end: 20080101
  2. ALAVERT /USA/ [Concomitant]
     Indication: HYPERSENSITIVITY
     Route: 048

REACTIONS (3)
  - ABNORMAL SENSATION IN EYE [None]
  - DRUG INEFFECTIVE FOR UNAPPROVED INDICATION [None]
  - EYE IRRITATION [None]
